FAERS Safety Report 6652012-5 (Version None)
Quarter: 2010Q1

REPORT INFORMATION
  Report Type: 
  Country: None (occurrence: None)
  Receive Date: 20100323
  Receipt Date: 20100311
  Transmission Date: 20100710
  Serious: Yes (Disabling)
  Sender: FDA-Public Use
  Company Number: LEO-2010-00118

PATIENT
  Age: 59 Year
  Sex: Female
  Weight: 62 kg

DRUGS (2)
  1. TACLONEX SCALP [Suspect]
     Indication: PSORIASIS
     Dates: start: 20091217, end: 20091218
  2. SQUAPHANE S (ALL OTHER THERAPEUTIC PRODUCTS) (SHAMPOO) [Concomitant]

REACTIONS (1)
  - ALOPECIA [None]
